FAERS Safety Report 9361067 (Version 2)
Quarter: 2013Q3

REPORT INFORMATION
  Report Type: Spontaneous
  Country: US (occurrence: US)
  Receive Date: 20130621
  Receipt Date: 20130722
  Transmission Date: 20140515
  Serious: Yes (Hospitalization, Other)
  Sender: FDA-Public Use
  Company Number: US-ASTELLAS-2013US006416

PATIENT
  Age: 46 Year
  Sex: Male
  Weight: 97 kg

DRUGS (5)
  1. PROGRAF [Suspect]
     Indication: RENAL TRANSPLANT
     Dosage: 2 MG, BID
     Route: 048
     Dates: start: 20050802
  2. PROGRAF [Suspect]
     Dosage: 1 MG, BID
     Route: 048
     Dates: start: 2013, end: 2013
  3. PROGRAF [Suspect]
     Dosage: 2 MG, BID
     Route: 048
     Dates: start: 2013
  4. IMURAN                             /00001501/ [Concomitant]
     Indication: PRODUCT USED FOR UNKNOWN INDICATION
     Dosage: 100 MG, UID/QD
     Route: 065
  5. PREDNISONE [Concomitant]
     Indication: PRODUCT USED FOR UNKNOWN INDICATION
     Dosage: 10 MG, UID/QD
     Route: 065

REACTIONS (38)
  - Coronary artery disease [Unknown]
  - Hypovolaemia [Recovered/Resolved]
  - Compression fracture [Unknown]
  - Pulseless electrical activity [Recovered/Resolved]
  - Presyncope [Recovered/Resolved]
  - Hypertension [Recovering/Resolving]
  - Fall [Recovered/Resolved]
  - Clostridium difficile colitis [Unknown]
  - Cytomegalovirus viraemia [Unknown]
  - Hypotension [Recovered/Resolved]
  - Atrial fibrillation [Recovered/Resolved]
  - Convulsion [Unknown]
  - Metabolic acidosis [Recovered/Resolved]
  - Sepsis [Unknown]
  - Pneumonia [Unknown]
  - Urinary tract infection bacterial [Unknown]
  - Urinary tract infection [Unknown]
  - Renal failure acute [Unknown]
  - Renal failure acute [Recovered/Resolved]
  - Renal tubular necrosis [Recovering/Resolving]
  - Back pain [Unknown]
  - Fall [Recovered/Resolved]
  - Gastric disorder [Unknown]
  - Cognitive disorder [Unknown]
  - Osteopenia [Unknown]
  - Osteoporosis [Unknown]
  - Complications of transplant surgery [Unknown]
  - Lordosis [Unknown]
  - Angiopathy [Unknown]
  - Cardiomegaly [Unknown]
  - Troponin increased [Unknown]
  - Basal ganglia infarction [Unknown]
  - Disorientation [Recovered/Resolved]
  - Dizziness [Recovered/Resolved]
  - Leukopenia [Unknown]
  - Hyperglycaemia [Unknown]
  - Sinus tachycardia [Unknown]
  - Weight increased [Unknown]
